FAERS Safety Report 20845889 (Version 3)
Quarter: 2022Q2

REPORT INFORMATION
  Report Type: Spontaneous
  Country: US (occurrence: US)
  Receive Date: 20220518
  Receipt Date: 20220524
  Transmission Date: 20220720
  Serious: No
  Sender: FDA-Public Use
  Company Number: US-BoehringerIngelheim-2022-BI-171255

PATIENT
  Sex: Female

DRUGS (1)
  1. GLYXAMBI [Suspect]
     Active Substance: EMPAGLIFLOZIN\LINAGLIPTIN
     Indication: Product used for unknown indication

REACTIONS (6)
  - Pain [Unknown]
  - Fall [Unknown]
  - Gait disturbance [Unknown]
  - Dysstasia [Unknown]
  - Sitting disability [Unknown]
  - Off label use [Unknown]
